FAERS Safety Report 7419547-9 (Version None)
Quarter: 2011Q2

REPORT INFORMATION
  Report Type: 
  Country: None (occurrence: None)
  Receive Date: 20110418
  Receipt Date: 20110413
  Transmission Date: 20111010
  Serious: Yes (Other)
  Sender: FDA-Public Use
  Company Number: US-TEVA-276561USA

PATIENT

DRUGS (1)
  1. AZILECT [Suspect]
     Indication: PARKINSON'S DISEASE

REACTIONS (1)
  - MYOCARDIAL INFARCTION [None]
